FAERS Safety Report 7344202-3 (Version None)
Quarter: 2011Q1

REPORT INFORMATION
  Report Type: 
  Country: None (occurrence: None)
  Receive Date: 20110310
  Receipt Date: 20100816
  Transmission Date: 20110831
  Serious: No
  Sender: FDA-Public Use
  Company Number: A0876073A

PATIENT
  Age: 37 Year
  Sex: Female

DRUGS (1)
  1. NICORETTE [Suspect]
     Dates: start: 20100808, end: 20100815

REACTIONS (3)
  - ORAL PRURITUS [None]
  - RASH [None]
  - HYPERSENSITIVITY [None]
